FAERS Safety Report 11174932 (Version 2)
Quarter: 2015Q3

REPORT INFORMATION
  Report Type: Spontaneous
  Country: US (occurrence: US)
  Receive Date: 20150609
  Receipt Date: 20150723
  Transmission Date: 20151125
  Serious: Yes (Other)
  Sender: FDA-Public Use
  Company Number: US-PFIZER INC-2015192275

PATIENT
  Sex: Female
  Weight: 66 kg

DRUGS (1)
  1. EFFEXOR [Suspect]
     Active Substance: VENLAFAXINE HYDROCHLORIDE
     Indication: FIBROMYALGIA
     Dosage: UNK

REACTIONS (2)
  - Drug ineffective [Recovered/Resolved]
  - Stupor [Recovered/Resolved]
